FAERS Safety Report 8206044-6 (Version None)
Quarter: 2012Q1

REPORT INFORMATION
  Report Type: 
  Country: None (occurrence: None)
  Receive Date: 20120309
  Receipt Date: 20120229
  Transmission Date: 20120608
  Serious: Yes (Other)
  Sender: FDA-Public Use
  Company Number: 2011SP055091

PATIENT
  Sex: Female

DRUGS (1)
  1. DESOGESTREL AND ETHINYL ESTRADIOL [Suspect]
     Indication: CONTRACEPTION
     Dosage: PO
     Route: 048
     Dates: start: 20050101, end: 20111201

REACTIONS (5)
  - VAGINAL DISCHARGE [None]
  - GALLBLADDER DISORDER [None]
  - HYPERTENSION [None]
  - HEART RATE INCREASED [None]
  - DYSMENORRHOEA [None]
